FAERS Safety Report 4509433-6 (Version None)
Quarter: 2004Q4

REPORT INFORMATION
  Report Type: 
  Country: None (occurrence: None)
  Receive Date: 20041025
  Receipt Date: 20040709
  Transmission Date: 20050328
  Serious: Yes (Other)
  Sender: FDA-Public Use
  Company Number: US-JNJFOC-20040702649

PATIENT
  Age: 43 Year
  Sex: Female

DRUGS (8)
  1. INFLIXIMAB (INFLIXIMAB, RECOMBINANT) LYOPHILIZED POWDER [Suspect]
     Indication: RHEUMATOID ARTHRITIS
     Dosage: 1 IN 4 WEEK
     Dates: start: 20020221
  2. METHOTREXATE [Concomitant]
  3. BENADRYL [Concomitant]
  4. SYNTHROID [Concomitant]
  5. FOLIC ACID [Concomitant]
  6. BIRTH CONTROL (ORAL CONTRACEPTIVE NOS) [Concomitant]
  7. ALEVE [Concomitant]
  8. MAALOX (MAALOX) [Concomitant]

REACTIONS (1)
  - INFUSION RELATED REACTION [None]
